FAERS Safety Report 14337430 (Version 1)
Quarter: 2017Q4

REPORT INFORMATION
  Report Type: Spontaneous
  Country: US (occurrence: US)
  Receive Date: 20171229
  Receipt Date: 20171229
  Transmission Date: 20180321
  Serious: Yes (Hospitalization, Other)
  Sender: FDA-Public Use
  Company Number: US-PFIZER INC-2017551432

PATIENT
  Age: 62 Year
  Sex: Female
  Weight: 81.19 kg

DRUGS (3)
  1. LORAZEPAM. [Concomitant]
     Active Substance: LORAZEPAM
  2. XARELTO [Suspect]
     Active Substance: RIVAROXABAN
     Indication: ANTICOAGULANT THERAPY
     Dosage: UNK
     Dates: start: 201708, end: 201708
  3. IBRANCE [Suspect]
     Active Substance: PALBOCICLIB
     Indication: NEOPLASM MALIGNANT
     Dosage: UNK, DAILY (EVERYDAY)
     Route: 048
     Dates: start: 201706, end: 201708

REACTIONS (6)
  - Anaemia [Unknown]
  - Full blood count decreased [Unknown]
  - White blood cell count decreased [Unknown]
  - Cerebrovascular accident [Not Recovered/Not Resolved]
  - Visual impairment [Unknown]
  - Thrombosis [Unknown]

NARRATIVE: CASE EVENT DATE: 201708
